FAERS Safety Report 23320981 (Version 2)
Quarter: 2024Q1

REPORT INFORMATION
  Report Type: Spontaneous
  Country: US (occurrence: US)
  Receive Date: 20231220
  Receipt Date: 20240320
  Transmission Date: 20240409
  Serious: No
  Sender: FDA-Public Use
  Company Number: US-GLAXOSMITHKLINE-US2023AMR137971

PATIENT

DRUGS (1)
  1. BREXAFEMME [Suspect]
     Active Substance: IBREXAFUNGERP CITRATE
     Indication: Fungal infection
     Dosage: UNK
     Route: 065
     Dates: start: 202212

REACTIONS (2)
  - Product use in unapproved indication [Unknown]
  - Recalled product administered [Unknown]
